FAERS Safety Report 6105351-0 (Version None)
Quarter: 2009Q1

REPORT INFORMATION
  Report Type: 
  Country: None (occurrence: None)
  Receive Date: 20090227
  Receipt Date: 20080131
  Transmission Date: 20090719
  Serious: Yes (Hospitalization)
  Sender: FDA-Public Use
  Company Number: RB-9176-2008

PATIENT
  Age: 28 Year
  Sex: Male

DRUGS (1)
  1. SUBOXONE [Suspect]
     Indication: DRUG DEPENDENCE
     Dosage: 8 MG SUBLINGUAL
     Route: 060
     Dates: start: 20071001, end: 20080101

REACTIONS (3)
  - DRUG WITHDRAWAL SYNDROME [None]
  - INSOMNIA [None]
  - MYALGIA [None]
